FAERS Safety Report 6324755-4 (Version None)
Quarter: 2009Q3

REPORT INFORMATION
  Report Type: 
  Country: None (occurrence: None)
  Receive Date: 20090824
  Receipt Date: 20090504
  Transmission Date: 20100115
  Serious: No
  Sender: FDA-Public Use
  Company Number: US-ABBOTT-09P-163-0571373-00

PATIENT
  Sex: Male

DRUGS (20)
  1. NIASPAN [Suspect]
     Indication: HIGH DENSITY LIPOPROTEIN DECREASED
  2. NIASPAN [Suspect]
     Indication: LOW DENSITY LIPOPROTEIN INCREASED
  3. SIMCOR [Suspect]
     Indication: HIGH DENSITY LIPOPROTEIN DECREASED
     Dosage: 500/20MG
     Dates: start: 20090401
  4. SIMCOR [Suspect]
     Indication: LOW DENSITY LIPOPROTEIN INCREASED
  5. DIGOXIN [Concomitant]
     Indication: DRUG USE FOR UNKNOWN INDICATION
  6. RANEXA [Concomitant]
     Indication: DRUG USE FOR UNKNOWN INDICATION
  7. ZOLOFT [Concomitant]
     Indication: DRUG USE FOR UNKNOWN INDICATION
  8. LISINOPRIL [Concomitant]
     Indication: DRUG USE FOR UNKNOWN INDICATION
  9. GLYBURIDE [Concomitant]
     Indication: DRUG USE FOR UNKNOWN INDICATION
  10. THYROID TAB [Concomitant]
     Indication: DRUG USE FOR UNKNOWN INDICATION
  11. AMIODARONE HCL [Concomitant]
     Indication: DRUG USE FOR UNKNOWN INDICATION
  12. BUMETANIDE [Concomitant]
     Indication: DRUG USE FOR UNKNOWN INDICATION
  13. SPIRONOLACTONE [Concomitant]
     Indication: DRUG USE FOR UNKNOWN INDICATION
  14. BUPROPION [Concomitant]
     Indication: DRUG USE FOR UNKNOWN INDICATION
  15. PROVIGIL [Concomitant]
     Indication: DRUG USE FOR UNKNOWN INDICATION
  16. ASPIRIN [Concomitant]
     Indication: DRUG USE FOR UNKNOWN INDICATION
  17. XOPENEX [Concomitant]
     Indication: DRUG USE FOR UNKNOWN INDICATION
  18. SIMACORT [Concomitant]
     Indication: DRUG USE FOR UNKNOWN INDICATION
  19. FLUTICASONE [Concomitant]
     Indication: DRUG USE FOR UNKNOWN INDICATION
  20. TRAZODONE HCL [Concomitant]
     Indication: INSOMNIA

REACTIONS (5)
  - BLOOD GLUCOSE INCREASED [None]
  - DISCOMFORT [None]
  - FEELING HOT [None]
  - FLUSHING [None]
  - HYPERHIDROSIS [None]
